FAERS Safety Report 8809679 (Version 2)
Quarter: 2015Q2

REPORT INFORMATION
  Report Type: Report from Study
  Country: US (occurrence: US)
  Receive Date: 20120926
  Receipt Date: 20150410
  Transmission Date: 20150821
  Serious: Yes (Death)
  Sender: FDA-Public Use
  Company Number: US-ROCHE-1128689

PATIENT
  Age: 84 Year
  Sex: Male
  Weight: 65.83 kg

DRUGS (28)
  1. ZOLOFT [Concomitant]
     Active Substance: SERTRALINE HYDROCHLORIDE
  2. COUMADIN [Concomitant]
     Active Substance: WARFARIN SODIUM
     Route: 065
  3. GAS-X [Concomitant]
     Active Substance: DIMETHICONE
  4. AVODART [Concomitant]
     Active Substance: DUTASTERIDE
  5. DECADRON [Concomitant]
     Active Substance: DEXAMETHASONE
     Route: 042
  6. ZOFRAN [Concomitant]
     Active Substance: ONDANSETRON HYDROCHLORIDE
     Route: 042
  7. HEPARIN [Concomitant]
     Active Substance: HEPARIN SODIUM
     Route: 065
  8. LEUCOVORIN [Concomitant]
     Active Substance: LEUCOVORIN
     Route: 065
     Dates: start: 200111
  9. PROCRIT [Concomitant]
     Active Substance: ERYTHROPOIETIN
     Route: 065
  10. LOPERAMIDE [Concomitant]
     Active Substance: LOPERAMIDE
     Route: 065
  11. SYNTHROID [Concomitant]
     Active Substance: LEVOTHYROXINE SODIUM
     Route: 065
  12. BENADRYL [Concomitant]
     Active Substance: DIPHENHYDRAMINE HYDROCHLORIDE
     Route: 042
  13. AVASTIN [Suspect]
     Active Substance: BEVACIZUMAB
     Indication: COLON CANCER
     Route: 042
     Dates: start: 20040504
  14. LASIX [Concomitant]
     Active Substance: FUROSEMIDE
  15. COUMADIN [Concomitant]
     Active Substance: WARFARIN SODIUM
     Route: 065
  16. RANITIDINE [Concomitant]
     Active Substance: RANITIDINE\RANITIDINE HYDROCHLORIDE
     Route: 065
  17. OXALIPLATIN. [Concomitant]
     Active Substance: OXALIPLATIN
     Route: 065
  18. CAMPTOSAR [Concomitant]
     Active Substance: IRINOTECAN HYDROCHLORIDE
     Route: 065
  19. MACRODANTIN [Concomitant]
     Active Substance: NITROFURANTOIN
  20. LOMOTIL (UNITED STATES) [Concomitant]
  21. 5-FU [Concomitant]
     Active Substance: FLUOROURACIL
     Route: 042
     Dates: start: 200111
  22. NEUPOGEN [Concomitant]
     Active Substance: FILGRASTIM
     Route: 065
  23. BENADRYL [Concomitant]
     Active Substance: DIPHENHYDRAMINE HYDROCHLORIDE
     Route: 042
  24. TORECAN [Concomitant]
     Active Substance: THIETHYLPERAZINE MALATE
     Route: 048
  25. OXALIPLATIN. [Concomitant]
     Active Substance: OXALIPLATIN
     Route: 065
  26. XELODA [Suspect]
     Active Substance: CAPECITABINE
     Indication: COLON CANCER
     Route: 048
     Dates: start: 20040309
  27. KYTRIL [Concomitant]
     Active Substance: GRANISETRON HYDROCHLORIDE
     Route: 042
  28. LEUCOVORIN [Concomitant]
     Active Substance: LEUCOVORIN

REACTIONS (13)
  - Urinary tract infection [Unknown]
  - Thrombocytopenia [Unknown]
  - Stomatitis [Recovered/Resolved]
  - Death [Fatal]
  - Diarrhoea [Recovered/Resolved]
  - Epistaxis [Unknown]
  - Disease progression [Unknown]
  - Dermatitis [Unknown]
  - Oedema peripheral [Unknown]
  - Medical device pain [Unknown]
  - Asthenia [Unknown]
  - Mucosal inflammation [Unknown]
  - Ecchymosis [Unknown]

NARRATIVE: CASE EVENT DATE: 200410
